FAERS Safety Report 7679534-2 (Version None)
Quarter: 2011Q3

REPORT INFORMATION
  Report Type: 
  Country: None (occurrence: None)
  Receive Date: 20110812
  Receipt Date: 20110810
  Transmission Date: 20111222
  Serious: Yes (Other)
  Sender: FDA-Public Use
  Company Number: MX-BRISTOL-MYERS SQUIBB COMPANY-15882723

PATIENT
  Age: 38 Year
  Sex: Male

DRUGS (7)
  1. LOPINAVIR/RITONAVIR [Concomitant]
     Dosage: 2003-2005 AND 2005-2010
     Dates: start: 20030101, end: 20100101
  2. ABACAVIR [Concomitant]
     Dosage: 2001-2003 AND 2003-2005 AND 2005-2010
     Dates: start: 20010101, end: 20100101
  3. ZIDOVUDINE [Concomitant]
     Dosage: 2003-2005, 2005-2010
     Dates: start: 20030101, end: 20100101
  4. RITONAVIR [Suspect]
     Dosage: CAPS. RECEIVED FROM 2001-2003
     Dates: start: 20010101
  5. REYATAZ [Suspect]
     Indication: HIV INFECTION
     Route: 048
     Dates: start: 20100901
  6. TRUVADA [Suspect]
     Indication: HIV INFECTION
     Dosage: 1DF: 300/200MG
     Dates: start: 20100101
  7. NEVIRAPINE [Concomitant]
     Dosage: 2001-2001 AND 2003-2005
     Dates: start: 20010101, end: 20050101

REACTIONS (3)
  - NORMOCHROMIC NORMOCYTIC ANAEMIA [None]
  - JAUNDICE [None]
  - THROMBOCYTOPENIA [None]
